FAERS Safety Report 5314853-6 (Version None)
Quarter: 2007Q2

REPORT INFORMATION
  Report Type: 
  Country: None (occurrence: None)
  Receive Date: 20070502
  Receipt Date: 20070502
  Transmission Date: 20071010
  Serious: Yes (Hospitalization)
  Sender: FDA-Public Use
  Company Number: AU-BRISTOL-MYERS SQUIBB COMPANY-13737119

PATIENT
  Age: 52 Year
  Sex: Male

DRUGS (4)
  1. CISPLATIN [Suspect]
     Indication: GASTRIC CANCER
     Route: 041
     Dates: start: 20060501, end: 20060501
  2. S-1 [Suspect]
     Indication: GASTRIC CANCER
     Dates: start: 20060501, end: 20060521
  3. PARACETAMOL [Concomitant]
     Indication: ABDOMINAL PAIN
     Route: 048
  4. TRAMADOL HCL [Concomitant]
     Indication: ABDOMINAL PAIN
     Route: 048
     Dates: start: 20060301, end: 20060529

REACTIONS (3)
  - ANOREXIA [None]
  - CONSTIPATION [None]
  - DEHYDRATION [None]
